FAERS Safety Report 25735676 (Version 1)
Quarter: 2025Q3

REPORT INFORMATION
  Report Type: Report from Study
  Country: US (occurrence: US)
  Receive Date: 20250828
  Receipt Date: 20250828
  Transmission Date: 20251020
  Serious: Yes (Death)
  Sender: ELI LILLY AND COMPANY
  Company Number: US-ELI_LILLY_AND_COMPANY-US202508026033

PATIENT
  Age: 65 Year
  Sex: Female

DRUGS (1)
  1. TALTZ [Suspect]
     Active Substance: IXEKIZUMAB
     Indication: Product used for unknown indication
     Route: 065

REACTIONS (7)
  - Cerebral thrombosis [Fatal]
  - Swelling [Unknown]
  - Ear swelling [Unknown]
  - Pharyngeal swelling [Unknown]
  - Psoriatic arthropathy [Unknown]
  - Rash [Unknown]
  - Rash pruritic [Unknown]
